FAERS Safety Report 4337654-4 (Version None)
Quarter: 2004Q2

REPORT INFORMATION
  Report Type: 
  Country: None (occurrence: None)
  Receive Date: 20040408
  Receipt Date: 20040331
  Transmission Date: 20050107
  Serious: Yes (Hospitalization)
  Sender: FDA-Public Use
  Company Number: 2004-03-0867

PATIENT
  Age: 62 Year
  Sex: 0

DRUGS (1)
  1. INTRON A [Suspect]
     Indication: CHRONIC MYELOID LEUKAEMIA
     Dosage: 6 MIU BIW INTRAMUSCULAR
     Route: 030
     Dates: start: 20000101, end: 20040301

REACTIONS (1)
  - CEREBRAL HAEMORRHAGE [None]
